FAERS Safety Report 6295056-8 (Version None)
Quarter: 2009Q3

REPORT INFORMATION
  Report Type: 
  Country: None (occurrence: None)
  Receive Date: 20090731
  Receipt Date: 20090731
  Transmission Date: 20100115
  Serious: Yes (Hospitalization)
  Sender: FDA-Public Use
  Company Number: None

PATIENT
  Age: 70 Year
  Sex: Male
  Weight: 72.1 kg

DRUGS (20)
  1. CARBOPLATIN [Suspect]
     Indication: NON-SMALL CELL LUNG CANCER
     Dosage: AUC 6 EVERY 21 DAYS IV BOLUS
     Route: 040
     Dates: start: 20090717, end: 20090717
  2. BEVACIZUMAB [Suspect]
     Indication: NON-SMALL CELL LUNG CANCER
     Dosage: 15 MG/KG EVERY 21 DAYS IV BOLUS
     Route: 040
     Dates: start: 20090717, end: 20090717
  3. BORTEZOMIB [Suspect]
     Indication: NON-SMALL CELL LUNG CANCER
     Dosage: 1.8 MG/M2 DAY 1 + 8 OF 21 DA IV BOLUS
     Route: 040
     Dates: start: 20090717, end: 20090724
  4. INSPRA [Concomitant]
  5. VASOTEC [Concomitant]
  6. COREG [Concomitant]
  7. LANOXIN [Concomitant]
  8. FUROSTEMIDE [Concomitant]
  9. CRESTOR [Concomitant]
  10. ASPIRIN [Suspect]
  11. SYNTHROID [Concomitant]
  12. LOVENOX [Concomitant]
  13. PREDNISONE [Concomitant]
  14. DIPHENHYDRAMINE HCL [Concomitant]
  15. ALBUTEROL [Concomitant]
  16. CITALOPRAM [Concomitant]
  17. PROCHLORPERAZINE [Concomitant]
  18. ONDANSETRON [Concomitant]
  19. HYDROCODONE BITARTRATE + ACETAMINOPHEN [Concomitant]
  20. OXYGEN THERAPY [Concomitant]

REACTIONS (2)
  - DYSPNOEA [None]
  - MALIGNANT PLEURAL EFFUSION [None]
